FAERS Safety Report 13793927 (Version 1)
Quarter: 2017Q3

REPORT INFORMATION
  Report Type: Spontaneous
  Country: US (occurrence: US)
  Receive Date: 20170726
  Receipt Date: 20170726
  Transmission Date: 20171127
  Serious: No
  Sender: FDA-Public Use
  Company Number: None

PATIENT
  Age: 47 Year
  Sex: Female

DRUGS (1)
  1. FIRAZYR [Suspect]
     Active Substance: ICATIBANT ACETATE
     Indication: ANGIOEDEMA
     Dosage: DOSE - 1 SYRINGE (30ML)?FREQUENCY - ONSET OF SYMPTOMS
     Route: 058
     Dates: start: 20170111

REACTIONS (1)
  - Malaise [None]

NARRATIVE: CASE EVENT DATE: 20170722
